FAERS Safety Report 6573883-7 (Version None)
Quarter: 2010Q1

REPORT INFORMATION
  Report Type: 
  Country: None (occurrence: None)
  Receive Date: 20100204
  Receipt Date: 20100204
  Transmission Date: 20100710
  Serious: Yes (Other)
  Sender: FDA-Public Use
  Company Number: None

PATIENT
  Sex: Male
  Weight: 78.4723 kg

DRUGS (1)
  1. LAMOTRIGINE [Suspect]
     Indication: BIPOLAR DISORDER
     Dosage: 1 TABLET 2 X DAY PO
     Route: 048
     Dates: start: 20100120, end: 20100131

REACTIONS (8)
  - AGITATION [None]
  - BIPOLAR DISORDER [None]
  - COMPULSIONS [None]
  - DEPRESSION [None]
  - DRUG INEFFECTIVE [None]
  - INSOMNIA [None]
  - INTENTIONAL SELF-INJURY [None]
  - PRODUCT SUBSTITUTION ISSUE [None]
